FAERS Safety Report 6424595-1 (Version None)
Quarter: 2009Q4

REPORT INFORMATION
  Report Type: 
  Country: None (occurrence: None)
  Receive Date: 20091103
  Receipt Date: 20091020
  Transmission Date: 20100525
  Serious: Yes (Other)
  Sender: FDA-Public Use
  Company Number: PHHY2009FR47396

PATIENT
  Age: 78 Year
  Sex: Male

DRUGS (3)
  1. NISIS [Suspect]
     Indication: HYPERTENSION
     Dosage: 160 MG, QD
     Route: 048
     Dates: start: 20090401, end: 20090501
  2. NISISCO [Suspect]
     Indication: HYPERTENSION
     Dosage: 1 TABLET (160/12.5 MG)
     Route: 048
     Dates: end: 20090401
  3. FUROSEMIDE [Concomitant]

REACTIONS (7)
  - COUGH [None]
  - DYSPNOEA [None]
  - EPISTAXIS [None]
  - ERYSIPELAS [None]
  - OEDEMA [None]
  - RESPIRATORY DISORDER [None]
  - WEIGHT INCREASED [None]
